FAERS Safety Report 18636366 (Version 2)
Quarter: 2021Q2

REPORT INFORMATION
  Report Type: Other
  Country: DE (occurrence: DE)
  Receive Date: 20201218
  Receipt Date: 20210603
  Transmission Date: 20210717
  Serious: Yes (Hospitalization)
  Sender: FDA-Public Use
  Company Number: DE-LUPIN PHARMACEUTICALS INC.-2020-10273

PATIENT
  Age: 31 Year
  Sex: Female

DRUGS (5)
  1. CARIPRAZINE [Suspect]
     Active Substance: CARIPRAZINE
     Dosage: 1.5 MILLIGRAM, QD
     Route: 065
     Dates: start: 20200118, end: 20200120
  2. QUETIAPINE FUMARATE EXTENDED?RELEASE TABLETS [Suspect]
     Active Substance: QUETIAPINE FUMARATE
     Dosage: 100 MILLIGRAM, QD
     Route: 065
     Dates: start: 20200107, end: 20200210
  3. QUETIAPINE FUMARATE EXTENDED?RELEASE TABLETS [Suspect]
     Active Substance: QUETIAPINE FUMARATE
     Indication: PRODUCT USED FOR UNKNOWN INDICATION
     Dosage: 100 MILLIGRAM, QD (PROLONGED?RELEASE TABLET)
     Route: 065
     Dates: start: 20200107, end: 20200210
  4. CARIPRAZINE [Suspect]
     Active Substance: CARIPRAZINE
     Indication: PRODUCT USED FOR UNKNOWN INDICATION
     Dosage: 1.5 MILLIGRAM, QD
     Route: 065
     Dates: start: 20200103, end: 20200107
  5. CARIPRAZINE [Suspect]
     Active Substance: CARIPRAZINE
     Dosage: 3 MILLIGRAM, QD (ADRS AT THIS DOSAGE)
     Route: 065
     Dates: start: 20200108, end: 20200117

REACTIONS (3)
  - Increased appetite [Recovering/Resolving]
  - Restless legs syndrome [Recovering/Resolving]
  - Akathisia [Recovering/Resolving]

NARRATIVE: CASE EVENT DATE: 20200114
